FAERS Safety Report 19966720 (Version 1)
Quarter: 2021Q4

REPORT INFORMATION
  Report Type: Spontaneous
  Country: SG (occurrence: SG)
  Receive Date: 20211019
  Receipt Date: 20211019
  Transmission Date: 20220303
  Serious: Yes (Hospitalization, Other)
  Sender: FDA-Public Use
  Company Number: SG-ROCHE-2932911

PATIENT
  Age: 59 Year
  Sex: Female

DRUGS (1)
  1. AVASTIN [Suspect]
     Active Substance: BEVACIZUMAB
     Indication: Neoplasm
     Route: 065

REACTIONS (4)
  - Ovarian cancer [Unknown]
  - Asthenia [Unknown]
  - Fall [Unknown]
  - Decreased appetite [Unknown]
